FAERS Safety Report 5469119-0 (Version None)
Quarter: 2007Q3

REPORT INFORMATION
  Report Type: 
  Country: None (occurrence: None)
  Receive Date: 20070927
  Receipt Date: 20070912
  Transmission Date: 20080115
  Serious: Yes (Other)
  Sender: FDA-Public Use
  Company Number: PHRM2007FR02261

PATIENT
  Age: 27 Year
  Sex: Male

DRUGS (2)
  1. ANTINEOPLASTIC AGENTS [Concomitant]
     Indication: BONE MARROW TRANSPLANT
  2. GLEEVEC [Suspect]
     Route: 048

REACTIONS (3)
  - BONE MARROW TRANSPLANT [None]
  - CAPILLARY LEAK SYNDROME [None]
  - GRAFT VERSUS HOST DISEASE [None]
